FAERS Safety Report 15609905 (Version 3)
Quarter: 2023Q4

REPORT INFORMATION
  Report Type: Report from Study
  Country: ES (occurrence: ES)
  Receive Date: 20181113
  Receipt Date: 20231004
  Transmission Date: 20240109
  Serious: Yes (Hospitalization, Other)
  Sender: FDA-Public Use
  Company Number: None

PATIENT
  Age: 23 Year
  Sex: Male

DRUGS (9)
  1. METHOTREXATE [Suspect]
     Active Substance: METHOTREXATE
     Indication: Acute lymphocytic leukaemia
     Dosage: MAINTENANCE TREATMENT, REGIMEN 2?ALSO RECEIVED ON 23-OCT-2013
     Route: 065
     Dates: start: 20131022
  2. CYTARABINE [Suspect]
     Active Substance: CYTARABINE
     Indication: Acute lymphocytic leukaemia
     Dosage: CONSOLIDATION TREATMENT REGIMEN 1, AT HIGH DOSE
     Route: 065
     Dates: start: 20130325, end: 20130725
  3. IMATINIB [Suspect]
     Active Substance: IMATINIB
     Indication: Acute lymphocytic leukaemia
     Dosage: MAINTENANCE TREATMENT REGIMEN 3
     Route: 065
     Dates: start: 20131022
  4. PREDNISONE [Suspect]
     Active Substance: PREDNISONE
     Indication: Acute lymphocytic leukaemia
     Dosage: INDUCTION TREATMENT, REGIMEN 1
     Route: 065
     Dates: start: 20130212
  5. GENOXAL [Suspect]
     Active Substance: CYCLOPHOSPHAMIDE
     Indication: Acute lymphocytic leukaemia
     Dosage: REGIMEN 1 CONDITIONING REGIMEN
     Route: 065
     Dates: start: 20130823
  6. MERCAPTOPURINE [Suspect]
     Active Substance: MERCAPTOPURINE
     Indication: Acute lymphocytic leukaemia
     Dosage: MAINTENANCE TREATMENT REGIMEN 1
     Route: 065
     Dates: start: 20131022
  7. VINCRISTINE SULFATE [Suspect]
     Active Substance: VINCRISTINE SULFATE
     Indication: Acute lymphocytic leukaemia
     Dosage: INDUCTION TREATMENT
     Route: 065
     Dates: start: 20130212
  8. DAUNORUBICIN HYDROCHLORIDE [Suspect]
     Active Substance: DAUNORUBICIN HYDROCHLORIDE
     Indication: Acute lymphocytic leukaemia
     Dosage: INDUCTION TREATMENT
     Route: 065
     Dates: start: 20130212
  9. METHOTREXATE [Suspect]
     Active Substance: METHOTREXATE
     Indication: Acute lymphocytic leukaemia
     Dosage: QCY
     Dates: start: 20130325, end: 20130725

REACTIONS (3)
  - Pyrexia [Unknown]
  - Musculoskeletal chest pain [Unknown]
  - Acute lymphocytic leukaemia recurrent [Unknown]

NARRATIVE: CASE EVENT DATE: 20140415
